FAERS Safety Report 18647915 (Version 1)
Quarter: 2020Q4

REPORT INFORMATION
  Report Type: Spontaneous
  Country: TW (occurrence: TW)
  Receive Date: 20201222
  Receipt Date: 20201222
  Transmission Date: 20210114
  Serious: Yes (Hospitalization)
  Sender: FDA-Public Use
  Company Number: TW-TEVA-2020-TW-1860997

PATIENT
  Age: 8 Year
  Sex: Female

DRUGS (11)
  1. PREDNISOLONE. [Suspect]
     Active Substance: PREDNISOLONE
     Indication: NEPHROTIC SYNDROME
     Dosage: 60 MILLIGRAM DAILY;
     Route: 065
  2. MYFORTIC [Suspect]
     Active Substance: MYCOPHENOLATE SODIUM
     Indication: NEPHROTIC SYNDROME
     Dosage: 720 MILLIGRAM DAILY; 20 MG/KG
     Route: 065
     Dates: start: 20160304, end: 20170125
  3. CICLOSPORIN [Suspect]
     Active Substance: CYCLOSPORINE
     Indication: NEPHROTIC SYNDROME
     Dosage: 100 MILLIGRAM DAILY;
     Route: 065
     Dates: end: 20160304
  4. CICLOSPORIN [Suspect]
     Active Substance: CYCLOSPORINE
     Indication: NEPHROTIC SYNDROME
     Dosage: 50 MILLIGRAM DAILY; 1.7 MG/KG/DAY
     Route: 065
     Dates: start: 20120919
  5. CICLOSPORIN [Suspect]
     Active Substance: CYCLOSPORINE
     Indication: NEPHROTIC SYNDROME
     Dosage: 75 MILLIGRAM DAILY; 3 MG/KG/DAY FOR 4 MONTHS
     Route: 065
  6. PREDNISOLONE. [Suspect]
     Active Substance: PREDNISOLONE
     Indication: NEPHROTIC SYNDROME
     Dosage: 25 MILLIGRAM DAILY;
     Route: 065
  7. PREDNISOLONE. [Suspect]
     Active Substance: PREDNISOLONE
     Indication: NEPHROTIC SYNDROME
     Dosage: EVERY TWO DAYS
     Route: 065
  8. PREDNISOLONE. [Suspect]
     Active Substance: PREDNISOLONE
     Indication: NEPHROTIC SYNDROME
     Dosage: EVERY TWO DAYS
     Route: 065
  9. PREDNISOLONE. [Suspect]
     Active Substance: PREDNISOLONE
     Indication: NEPHROTIC SYNDROME
     Dosage: 45 MILLIGRAM DAILY; 2 MG/KG/DAY
     Route: 065
  10. PREDNISOLONE. [Suspect]
     Active Substance: PREDNISOLONE
     Indication: NEPHROTIC SYNDROME
     Dosage: EVERY TWO DAYS
     Route: 065
  11. PREDNISOLONE. [Suspect]
     Active Substance: PREDNISOLONE
     Indication: NEPHROTIC SYNDROME
     Dosage: 30 MILLIGRAM DAILY;
     Route: 065

REACTIONS (2)
  - Embryonal rhabdomyosarcoma [Recovering/Resolving]
  - Urinary tract infection [Unknown]

NARRATIVE: CASE EVENT DATE: 20161220
